FAERS Safety Report 17466396 (Version 3)
Quarter: 2020Q2

REPORT INFORMATION
  Report Type: Spontaneous
  Country: NL (occurrence: TR)
  Receive Date: 20200227
  Receipt Date: 20200615
  Transmission Date: 20200713
  Serious: Yes (Hospitalization, Other)
  Sender: FDA-Public Use
  Company Number: TR-ASTELLAS-2020US007541

PATIENT
  Sex: Female
  Weight: 2.45 kg

DRUGS (1)
  1. TACROLIMUS SYSTEMIC [Suspect]
     Active Substance: TACROLIMUS
     Indication: FOETAL EXPOSURE DURING PREGNANCY
     Dosage: UNK UNK, UNKNOWN FREQ.
     Route: 064

REACTIONS (3)
  - Premature baby [Unknown]
  - Acute kidney injury [Recovered/Resolved]
  - Low birth weight baby [Unknown]
